FAERS Safety Report 5381295-7 (Version None)
Quarter: 2007Q3

REPORT INFORMATION
  Report Type: 
  Country: None (occurrence: None)
  Receive Date: 20070703
  Receipt Date: 20061208
  Transmission Date: 20080115
  Serious: Yes (Death)
  Sender: FDA-Public Use
  Company Number: T200601430

PATIENT
  Age: 53 Year
  Sex: Female

DRUGS (6)
  1. METHADOSE [Suspect]
     Dosage: 40 MG, TID, ORAL
     Route: 048
  2. OXYCODONE HCL [Concomitant]
  3. DETROL /01350201 [Concomitant]
  4. TOLTERODINE TARTRATE [Concomitant]
  5. VALIUM /00017001/ (DIAZEPAM) [Concomitant]
  6. SEROQUEL /0127090 / (QUETIAPINE) [Concomitant]

REACTIONS (1)
  - DEATH [None]
